FAERS Safety Report 5115136-X (Version None)
Quarter: 2006Q3

REPORT INFORMATION
  Report Type: 
  Country: None (occurrence: None)
  Receive Date: 20060922
  Receipt Date: 20060912
  Transmission Date: 20061208
  Serious: Yes (Other)
  Sender: FDA-Public Use
  Company Number: 2006110914

PATIENT
  Age: 44 Year
  Sex: Female

DRUGS (6)
  1. DEPO-PROVERA [Suspect]
     Indication: CONTRACEPTION
     Dosage: SEE IMAGE
     Dates: start: 19900101, end: 19900101
  2. DEPO-PROVERA [Suspect]
     Indication: OVARIAN CYST
     Dosage: SEE IMAGE
     Dates: start: 19900101, end: 19900101
  3. DEPO-PROVERA [Suspect]
     Indication: CONTRACEPTION
     Dosage: SEE IMAGE
     Dates: start: 20060801, end: 20060801
  4. DEPO-PROVERA [Suspect]
     Indication: OVARIAN CYST
     Dosage: SEE IMAGE
     Dates: start: 20060801, end: 20060801
  5. DIPHENHYDRAMINE HCL [Suspect]
     Indication: INSOMNIA
  6. CLARINEX [Concomitant]

REACTIONS (4)
  - HYPERTENSION [None]
  - INSOMNIA [None]
  - LIBIDO DECREASED [None]
  - WEIGHT INCREASED [None]
